FAERS Safety Report 26187599 (Version 1)
Quarter: 2025Q4

REPORT INFORMATION
  Report Type: Spontaneous
  Country: US (occurrence: US)
  Receive Date: 20251222
  Receipt Date: 20251222
  Transmission Date: 20260117
  Serious: No
  Sender: DR REDDYS
  Company Number: US-DRL-USA-USA/2025/12/018641

PATIENT
  Age: 75 Year
  Sex: Male

DRUGS (2)
  1. ATORVASTATIN [Suspect]
     Active Substance: ATORVASTATIN
  2. TAFAMIDIS [Concomitant]
     Active Substance: TAFAMIDIS

REACTIONS (3)
  - Myalgia [Unknown]
  - Liver function test increased [Unknown]
  - Blood creatine phosphokinase increased [Unknown]
